FAERS Safety Report 16852276 (Version 1)
Quarter: 2019Q3

REPORT INFORMATION
  Report Type: Report from Study
  Country: GB (occurrence: GB)
  Receive Date: 20190925
  Receipt Date: 20190925
  Transmission Date: 20191005
  Serious: Yes (Death, Other)
  Sender: FDA-Public Use
  Company Number: GB-ACTELION-A-US2019-196113

PATIENT

DRUGS (1)
  1. VENTAVIS [Suspect]
     Active Substance: ILOPROST
     Indication: PULMONARY HYPERTENSION
     Route: 055

REACTIONS (5)
  - Drug ineffective [Unknown]
  - Condition aggravated [Unknown]
  - Adverse event [Unknown]
  - Death [Fatal]
  - Pulmonary arterial hypertension [Unknown]
